FAERS Safety Report 8327693 (Version 6)
Quarter: 2013Q1

REPORT INFORMATION
  Report Type: Spontaneous
  Country: US (occurrence: US)
  Receive Date: 20120109
  Receipt Date: 20130218
  Transmission Date: 20140127
  Serious: Yes (Hospitalization, Other)
  Sender: FDA-Public Use
  Company Number: US-ASTRAZENECA-2010SE51455

PATIENT
  Age: 77 Year
  Sex: Female
  Weight: 61.2 kg

DRUGS (46)
  1. SEROQUEL [Suspect]
     Indication: ANXIETY
     Dosage: 25 MG 1 TABLET AM AND 2 TABLETS HS
     Route: 048
     Dates: start: 2002
  2. SEROQUEL [Suspect]
     Indication: DEPRESSION
     Dosage: 25 MG 1 TABLET AM AND 2 TABLETS HS
     Route: 048
     Dates: start: 2002
  3. SEROQUEL [Suspect]
     Indication: NERVOUSNESS
     Dosage: 25 MG 1 TABLET AM AND 2 TABLETS HS
     Route: 048
     Dates: start: 2002
  4. SEROQUEL [Suspect]
     Indication: ANXIETY
     Dosage: 25 MG TWO TIMES AND 25 MG AT BEDTIME
     Route: 048
  5. SEROQUEL [Suspect]
     Indication: DEPRESSION
     Dosage: 25 MG TWO TIMES AND 25 MG AT BEDTIME
     Route: 048
  6. SEROQUEL [Suspect]
     Indication: NERVOUSNESS
     Dosage: 25 MG TWO TIMES AND 25 MG AT BEDTIME
     Route: 048
  7. SEROQUEL [Suspect]
     Indication: ANXIETY
     Dosage: 25 MG BID AND 50MG HS
     Route: 048
  8. SEROQUEL [Suspect]
     Indication: DEPRESSION
     Dosage: 25 MG BID AND 50MG HS
     Route: 048
  9. SEROQUEL [Suspect]
     Indication: NERVOUSNESS
     Dosage: 25 MG BID AND 50MG HS
     Route: 048
  10. SEROQUEL [Suspect]
     Indication: ANXIETY
     Route: 048
     Dates: start: 2003
  11. SEROQUEL [Suspect]
     Indication: DEPRESSION
     Route: 048
     Dates: start: 2003
  12. SEROQUEL [Suspect]
     Indication: NERVOUSNESS
     Route: 048
     Dates: start: 2003
  13. CRESTOR [Suspect]
     Indication: BLOOD CHOLESTEROL INCREASED
     Route: 048
     Dates: start: 2008
  14. CRESTOR [Suspect]
     Indication: PROPHYLAXIS
     Route: 048
     Dates: start: 2008
  15. CRESTOR [Suspect]
     Indication: BLOOD CHOLESTEROL INCREASED
     Route: 048
     Dates: start: 2011
  16. CRESTOR [Suspect]
     Indication: PROPHYLAXIS
     Route: 048
     Dates: start: 2011
  17. PENICILLIN [Suspect]
     Route: 065
  18. AMIODARONE [Concomitant]
     Indication: CARDIAC DISORDER
  19. LEVOTHYROXINE [Concomitant]
     Indication: THYROID DISORDER
     Route: 048
  20. PAIN MEDICATION [Concomitant]
     Indication: PAIN
  21. PRESTIQ [Concomitant]
     Indication: DEPRESSION
     Route: 048
  22. PRESTIQ [Concomitant]
     Indication: DEPRESSION
     Route: 048
     Dates: start: 2008
  23. ZANTAC OTC [Concomitant]
     Indication: DYSPEPSIA
     Route: 048
  24. ZANTAC OTC [Concomitant]
     Indication: DYSPEPSIA
     Dosage: ZANTAC
     Route: 048
  25. ZANTAC OTC [Concomitant]
     Indication: DYSPEPSIA
     Route: 048
     Dates: start: 2008
  26. VASOTEC [Concomitant]
     Indication: BLOOD PRESSURE
     Route: 048
  27. VASOTEC [Concomitant]
     Indication: BLOOD PRESSURE
     Route: 048
     Dates: start: 2011
  28. LASIX [Concomitant]
     Indication: DEHYDRATION
     Route: 048
  29. LASIX [Concomitant]
     Indication: BLOOD ANTIDIURETIC HORMONE
     Route: 048
  30. ECOTRIN [Concomitant]
     Indication: ATRIAL FIBRILLATION
     Route: 048
  31. ECOTRIN [Concomitant]
     Indication: HEART RATE IRREGULAR
     Route: 048
  32. ECOTRIN [Concomitant]
     Indication: COAGULATION TEST ABNORMAL
     Route: 048
  33. ECOTRIN [Concomitant]
     Indication: ATRIAL FIBRILLATION
     Route: 048
  34. ECOTRIN [Concomitant]
     Indication: HEART RATE IRREGULAR
     Route: 048
  35. ECOTRIN [Concomitant]
     Indication: COAGULATION TEST ABNORMAL
     Route: 048
  36. MIRALAX [Concomitant]
     Dosage: UNKNOWN, DAILY
  37. TRANSENE [Concomitant]
     Indication: ANXIETY
     Route: 048
  38. TRANSENE [Concomitant]
     Indication: ANXIETY
     Route: 048
  39. VICODAN [Concomitant]
     Indication: PAIN
     Dosage: 7.5/500 MG, AS NEEDED
  40. VICODAN [Concomitant]
     Indication: PAIN
     Dosage: 7.5/500 MG, EVERY SIX HOURS
     Route: 048
     Dates: start: 2011
  41. IBUPROFEN [Concomitant]
  42. PHENOBARBITAL [Concomitant]
     Indication: ANXIETY
  43. PHENOBARBITAL [Concomitant]
     Indication: ANXIETY
     Route: 048
  44. SYSTANE [Concomitant]
     Indication: EYE DISORDER
     Dosage: TWO TIMES A DAY
     Dates: start: 2008
  45. ATROVENT [Concomitant]
     Indication: RHINORRHOEA
     Dosage: TWO TIMES A DAY
     Route: 045
  46. PHENERGAN [Concomitant]
     Indication: GASTRIC DISORDER
     Route: 048
     Dates: start: 2012

REACTIONS (26)
  - Cataract [Unknown]
  - Spinal column stenosis [Unknown]
  - Malaise [Unknown]
  - Back disorder [Unknown]
  - Cardiac disorder [Unknown]
  - Musculoskeletal discomfort [Unknown]
  - Skin disorder [Unknown]
  - Malaise [Unknown]
  - Bradyphrenia [Unknown]
  - Body height decreased [Unknown]
  - Thyroid disorder [Unknown]
  - Diarrhoea [Unknown]
  - Adverse event [Unknown]
  - Fluid retention [Unknown]
  - Hypertension [Unknown]
  - Eye disorder [Unknown]
  - Pain [Unknown]
  - Abdominal pain upper [Unknown]
  - Hypotension [Unknown]
  - Spinal disorder [Unknown]
  - Rash [Unknown]
  - Blood cholesterol increased [Unknown]
  - Asthenia [Unknown]
  - Dizziness [Unknown]
  - Constipation [Unknown]
  - Off label use [Unknown]
